FAERS Safety Report 15295490 (Version 7)
Quarter: 2019Q1

REPORT INFORMATION
  Report Type: Report from Study
  Country: DE (occurrence: DE)
  Receive Date: 20180820
  Receipt Date: 20190308
  Transmission Date: 20190417
  Serious: Yes (Hospitalization, Congenital Anomaly, Other)
  Sender: FDA-Public Use
  Company Number: PHHY2018DE005511

PATIENT
  Age: 1 Month
  Sex: Female
  Weight: 2 kg

DRUGS (9)
  1. AMPICILLIN [Concomitant]
     Active Substance: AMPICILLIN
     Indication: PRODUCT USED FOR UNKNOWN INDICATION
     Dosage: UNK
     Route: 041
     Dates: start: 20180418, end: 20180418
  2. VIGANTOLETTEN [Concomitant]
     Active Substance: CHOLECALCIFEROL
     Indication: PRODUCT USED FOR UNKNOWN INDICATION
     Dosage: 1000 IU, UNK
     Route: 048
     Dates: start: 20180423
  3. CAFFEINE. [Concomitant]
     Active Substance: CAFFEINE
     Dosage: 15 MG, QD
     Route: 048
     Dates: start: 20180530
  4. CAFFEINE. [Concomitant]
     Active Substance: CAFFEINE
     Indication: PRODUCT USED FOR UNKNOWN INDICATION
     Dosage: 15 MG, QD
     Route: 048
     Dates: start: 20180407, end: 20180514
  5. SPIRONOLACTONE. [Concomitant]
     Active Substance: SPIRONOLACTONE
     Indication: PRODUCT USED FOR UNKNOWN INDICATION
     Dosage: 6 MG, QD
     Route: 065
     Dates: start: 20180530
  6. GILENYA [Suspect]
     Active Substance: FINGOLIMOD HYDROCHLORIDE
     Indication: FOETAL EXPOSURE DURING PREGNANCY
     Dosage: MATERNAL DOSE: 0.5 MG, QD
     Route: 064
  7. HYDROCHLOROTHIAZIDE. [Concomitant]
     Active Substance: HYDROCHLOROTHIAZIDE
     Indication: PRODUCT USED FOR UNKNOWN INDICATION
     Dosage: 3 MG, BID
     Route: 048
     Dates: start: 20180407
  8. FERRO SANOL [Concomitant]
     Active Substance: FERROUS GLYCINE SULFATE
     Indication: PRODUCT USED FOR UNKNOWN INDICATION
     Dosage: 7.5 MG, BID
     Route: 065
     Dates: start: 20180423
  9. TOBRAMYCIN. [Concomitant]
     Active Substance: TOBRAMYCIN
     Indication: PRODUCT USED FOR UNKNOWN INDICATION
     Dosage: UNK
     Route: 041
     Dates: start: 20180407, end: 20180416

REACTIONS (16)
  - Pulmonary valve stenosis [Recovered/Resolved]
  - Inguinal hernia [Recovered/Resolved]
  - Low birth weight baby [Unknown]
  - Haemangioma [Recovering/Resolving]
  - Premature baby [Recovered/Resolved with Sequelae]
  - Hypoxia [Recovering/Resolving]
  - Respiratory disorder [Recovered/Resolved]
  - Bradycardia neonatal [Recovered/Resolved]
  - Cardiac failure [Recovered/Resolved]
  - Escherichia infection [Unknown]
  - Ventricular septal defect [Recovered/Resolved]
  - Infantile apnoea [Recovered/Resolved]
  - Foetal exposure during pregnancy [Unknown]
  - Atrial septal defect [Recovering/Resolving]
  - Anaemia neonatal [Recovering/Resolving]
  - Neonatal infection [Recovered/Resolved]

NARRATIVE: CASE EVENT DATE: 20180510
